FAERS Safety Report 5457605-9 (Version None)
Quarter: 2007Q3

REPORT INFORMATION
  Report Type: 
  Country: None (occurrence: None)
  Receive Date: 20070918
  Receipt Date: 20070906
  Transmission Date: 20080115
  Serious: No
  Sender: FDA-Public Use
  Company Number: US-BOEHRINGER INGELHEIM PHARMACEUTICALS, INC.-2007-BP-20618BP

PATIENT
  Sex: Female

DRUGS (14)
  1. SPIRIVA [Suspect]
     Indication: CHRONIC OBSTRUCTIVE PULMONARY DISEASE
     Route: 055
     Dates: start: 20050101
  2. SPIRIVA [Suspect]
     Indication: ASTHMA
  3. ADVAIR DISKUS 100/50 [Concomitant]
  4. ZYRTEC [Concomitant]
  5. NEXIUM [Concomitant]
  6. ZESTRIL [Concomitant]
  7. MAXZIDE [Concomitant]
  8. NASACORT [Concomitant]
  9. FOSAMAX [Concomitant]
  10. CELEBREX [Concomitant]
  11. OXYCONTIN [Concomitant]
  12. SINGULAIR [Concomitant]
  13. CARBIDOPA [Concomitant]
  14. RITALIN [Concomitant]

REACTIONS (1)
  - ORAL FUNGAL INFECTION [None]
